FAERS Safety Report 5706272-5 (Version None)
Quarter: 2008Q2

REPORT INFORMATION
  Report Type: 
  Country: None (occurrence: None)
  Receive Date: 20080415
  Receipt Date: 20080331
  Transmission Date: 20081010
  Serious: Yes (Hospitalization)
  Sender: FDA-Public Use
  Company Number: CZ-GENENTECH-252639

PATIENT
  Sex: Female
  Weight: 68 kg

DRUGS (3)
  1. BEVACIZUMAB [Suspect]
     Indication: BREAST CANCER
     Dosage: 700 MG, Q2W
     Route: 042
     Dates: start: 20070924, end: 20071203
  2. PACLITAXEL [Concomitant]
     Indication: BREAST CANCER
     Dosage: UNK, UNK
     Dates: start: 20070924, end: 20071119
  3. CARBOPLATIN [Concomitant]
     Indication: BREAST CANCER
     Dosage: UNK, UNK
     Dates: start: 20070924, end: 20071119

REACTIONS (5)
  - DIZZINESS [None]
  - HEADACHE [None]
  - MALAISE [None]
  - METASTASES TO MENINGES [None]
  - VISUAL ACUITY REDUCED [None]
